FAERS Safety Report 8374303-2 (Version None)
Quarter: 2012Q2

REPORT INFORMATION
  Report Type: 
  Country: None (occurrence: None)
  Receive Date: 20120521
  Receipt Date: 20120514
  Transmission Date: 20120825
  Serious: Yes (Hospitalization, Disabling, Other)
  Sender: FDA-Public Use
  Company Number: PHEH2012US009743

PATIENT
  Sex: Female
  Weight: 63.492 kg

DRUGS (27)
  1. FOLIC ACID [Concomitant]
     Dosage: 1 DF, QD
     Route: 048
     Dates: start: 20100714
  2. VITAMIN D [Concomitant]
     Indication: VITAMIN SUPPLEMENTATION
     Dosage: 2000 U, DAILY
     Dates: start: 20110510
  3. ACETAMINOPHEN [Concomitant]
     Indication: PYREXIA
  4. GILENYA [Suspect]
     Dosage: 0.5 MG, QOD
     Route: 048
     Dates: start: 20120404
  5. LAMOTRIGINE [Concomitant]
     Indication: MULTIPLE SCLEROSIS
     Dosage: 1 DF, BID
     Dates: start: 20100421
  6. OMEPRAZOLE [Concomitant]
     Indication: GASTROOESOPHAGEAL REFLUX DISEASE
     Dosage: 1 DF, QD
     Route: 048
     Dates: start: 20080609
  7. BACLOFEN [Concomitant]
     Indication: MUSCLE SPASTICITY
     Dosage: 2 DF, QID
     Dates: start: 20100226
  8. FAMPRIDINE [Concomitant]
     Indication: MULTIPLE SCLEROSIS
     Dosage: 1 DF, BID
     Route: 048
     Dates: start: 20110409
  9. ACETAMINOPHEN [Concomitant]
     Indication: PAIN
     Dosage: 650 MG, PRN
     Dates: start: 20060720
  10. ARTIFICIAL TEARS [Concomitant]
     Indication: EYE IRRITATION
  11. DITROPAN [Concomitant]
     Indication: URGE INCONTINENCE
     Dosage: 1 DF, BID
     Dates: start: 20100216
  12. VENLAFAXINE [Concomitant]
     Indication: DEPRESSION
     Dosage: 1 DF, DAILY
     Route: 048
     Dates: start: 20070404
  13. LORATADINE [Concomitant]
     Dosage: 1 DF, QD
     Route: 048
     Dates: start: 20110404
  14. IBUPROFEN [Concomitant]
     Dosage: UNK UKN, UNK
     Dates: start: 20100430
  15. MACROBID [Concomitant]
     Indication: URINARY TRACT INFECTION
     Dosage: 1 DF, QHS
     Dates: start: 20100429
  16. BENZONATATE [Concomitant]
     Indication: COUGH
     Dosage: 1 DF, Q6H
     Dates: start: 20070917
  17. GILENYA [Suspect]
     Indication: MULTIPLE SCLEROSIS
     Dosage: 0.5 MG, QD
     Route: 048
     Dates: start: 20111230
  18. HYDROCHLOROTHIAZIDE [Concomitant]
     Indication: HYPERTENSION
     Dosage: 1 DF, UNK
     Dates: start: 20070409
  19. FIBERCON (POLYCARBOPHIL CALCIUM) [Concomitant]
     Indication: CONSTIPATION
     Dosage: UNK UKN, UNK
     Dates: start: 20080313
  20. MIRTAZAPINE [Concomitant]
     Indication: DEPRESSION
     Dosage: 1 DF, DAILY
     Route: 048
     Dates: start: 20061130
  21. VITAMIN D [Concomitant]
     Dosage: 1000 IU, DAILY
     Route: 048
     Dates: start: 20120423
  22. ARTIFICIAL TEARS [Concomitant]
     Indication: ERYTHEMA
     Dosage: UNK UKN, UNK
     Dates: start: 20110609
  23. IBUPROFEN [Concomitant]
     Indication: PAIN
     Dosage: 1 DF, TID
     Route: 048
     Dates: start: 20110513
  24. ACETAMINOPHEN [Concomitant]
     Indication: HEADACHE
     Dosage: 325 MG, Q4H
  25. BIOTIN [Concomitant]
     Indication: HYPOVITAMINOSIS
     Dosage: 1 DF, BID
     Dates: start: 20070320
  26. DOCUSATE SODIUM [Concomitant]
     Indication: CONSTIPATION
     Dosage: 2 DF, BID
     Dates: start: 20080213
  27. BACLOFEN [Concomitant]
     Indication: MULTIPLE SCLEROSIS

REACTIONS (16)
  - ASTHENIA [None]
  - FALL [None]
  - BLOOD GLUCOSE INCREASED [None]
  - WHITE BLOOD CELL COUNT DECREASED [None]
  - AGITATION [None]
  - HYPOKINESIA [None]
  - BLOOD UREA INCREASED [None]
  - INAPPROPRIATE SCHEDULE OF DRUG ADMINISTRATION [None]
  - BLOOD UREA NITROGEN/CREATININE RATIO INCREASED [None]
  - GAIT DISTURBANCE [None]
  - LYMPHOCYTE PERCENTAGE DECREASED [None]
  - EXCORIATION [None]
  - GRANULOCYTE COUNT DECREASED [None]
  - BLOOD ALKALINE PHOSPHATASE INCREASED [None]
  - ALANINE AMINOTRANSFERASE INCREASED [None]
  - LYMPHOCYTE COUNT DECREASED [None]
